FAERS Safety Report 6573662-0 (Version None)
Quarter: 2010Q1

REPORT INFORMATION
  Report Type: 
  Country: None (occurrence: None)
  Receive Date: 20100208
  Receipt Date: 20100203
  Transmission Date: 20100710
  Serious: Yes (Other)
  Sender: FDA-Public Use
  Company Number: US-B.I. PHARMACEUTICALS,INC./RIDGEFIELD-2010-BP-01368BP

PATIENT
  Sex: Female

DRUGS (3)
  1. SPIRIVA [Suspect]
     Dates: start: 20070101
  2. SPIRIVA [Suspect]
     Dates: start: 20100101
  3. CHANTIX [Suspect]
     Dates: start: 20080101

REACTIONS (2)
  - CONVULSION [None]
  - DRUG INEFFECTIVE [None]
